FAERS Safety Report 8494576-5 (Version None)
Quarter: 2012Q3

REPORT INFORMATION
  Report Type: 
  Country: None (occurrence: None)
  Receive Date: 20120709
  Receipt Date: 20120705
  Transmission Date: 20120928
  Serious: Yes (Hospitalization)
  Sender: FDA-Public Use
  Company Number: PHHY2012BR058072

PATIENT
  Sex: Male

DRUGS (1)
  1. MYFORTIC [Suspect]
     Indication: RENAL TRANSPLANT
     Dosage: 360 MG, QD
     Route: 048

REACTIONS (4)
  - LOSS OF CONSCIOUSNESS [None]
  - DRUG ADMINISTRATION ERROR [None]
  - RESPIRATORY DISORDER [None]
  - ORAL ADMINISTRATION COMPLICATION [None]
